FAERS Safety Report 22291842 (Version 1)
Quarter: 2023Q2

REPORT INFORMATION
  Report Type: Spontaneous
  Country: US (occurrence: US)
  Receive Date: 20230507
  Receipt Date: 20230507
  Transmission Date: 20230722
  Serious: Yes (Other)
  Sender: FDA-Public Use
  Company Number: US-BIOGEN-2023BI01203501

PATIENT
  Sex: Female

DRUGS (1)
  1. SPINRAZA [Suspect]
     Active Substance: NUSINERSEN
     Indication: Spinal muscular atrophy
     Route: 050
     Dates: start: 20180118, end: 20230119

REACTIONS (9)
  - Cerebrovascular accident [Unknown]
  - COVID-19 [Unknown]
  - Procedural anxiety [Unknown]
  - Mastication disorder [Unknown]
  - Tremor [Not Recovered/Not Resolved]
  - Sensory disturbance [Unknown]
  - Eating disorder [Unknown]
  - Dysphagia [Unknown]
  - Food craving [Unknown]

NARRATIVE: CASE EVENT DATE: 20220101
